FAERS Safety Report 9336524 (Version 1)
Quarter: 2013Q2

REPORT INFORMATION
  Report Type: Spontaneous
  Country: US (occurrence: US)
  Receive Date: 20130607
  Receipt Date: 20130607
  Transmission Date: 20140414
  Serious: No
  Sender: FDA-Public Use
  Company Number: US-BAYER-2013-069800

PATIENT
  Age: 74 Year
  Sex: Male
  Weight: 83.9 kg

DRUGS (6)
  1. ALEVE CAPLET [Suspect]
     Indication: ARTHRITIS
     Dosage: 1 DF, QD WITH FOOD
     Route: 048
     Dates: start: 1999
  2. ONE A DAY WOMEN^S [Concomitant]
  3. SIMVASTATIN [Concomitant]
  4. LIPITOR [Concomitant]
  5. MILK THISTLE [Concomitant]
  6. ZESTRIL [Concomitant]

REACTIONS (2)
  - Abdominal pain upper [Recovered/Resolved]
  - Incorrect drug administration duration [None]
